FAERS Safety Report 11722421 (Version 1)
Quarter: 2015Q4

REPORT INFORMATION
  Report Type: Spontaneous
  Country: LK (occurrence: LK)
  Receive Date: 20151111
  Receipt Date: 20151111
  Transmission Date: 20160304
  Serious: Yes (Hospitalization, Other)
  Sender: FDA-Public Use
  Company Number: LK-WATSON-2015-20030

PATIENT
  Age: 17 Year
  Sex: Male

DRUGS (4)
  1. MYCOPHENOLATE MOFETIL (UNKNOWN) [Suspect]
     Active Substance: MYCOPHENOLATE MOFETIL
     Indication: NEPHROTIC SYNDROME
     Dosage: 500 MG, QHS
     Route: 065
  2. ISONIAZID. [Concomitant]
     Active Substance: ISONIAZID
     Indication: ANTIBIOTIC PROPHYLAXIS
     Dosage: 300 MG, UNKNOWN
     Route: 065
  3. TACROLIMUS (UNKNOWN) [Suspect]
     Active Substance: TACROLIMUS
     Indication: NEPHROTIC SYNDROME
     Dosage: 5 MG, BID
     Route: 065
  4. PREDNISOLONE (UNKNOWN) [Suspect]
     Active Substance: PREDNISOLONE
     Indication: NEPHROTIC SYNDROME
     Dosage: 10 MG, UNKNOWN
     Route: 065

REACTIONS (3)
  - Cushing^s syndrome [Unknown]
  - Vasculitis [Recovered/Resolved with Sequelae]
  - Tuberculosis of central nervous system [Recovered/Resolved with Sequelae]
